FAERS Safety Report 7092926-8 (Version None)
Quarter: 2010Q4

REPORT INFORMATION
  Report Type: 
  Country: None (occurrence: None)
  Receive Date: 20101110
  Receipt Date: 20101102
  Transmission Date: 20110411
  Serious: No
  Sender: FDA-Public Use
  Company Number: US-PFIZER INC-2010139978

PATIENT
  Sex: Female
  Weight: 90.703 kg

DRUGS (4)
  1. CHANTIX [Suspect]
     Indication: SMOKING CESSATION THERAPY
     Dosage: 0.5 MG, DAILY
     Route: 048
     Dates: start: 20101001
  2. CHANTIX [Suspect]
     Dosage: 1 MG, 2X/DAY
     Route: 048
  3. ZOLOFT [Concomitant]
     Indication: DEPRESSION
     Dosage: 100 MG, 1X/DAY
     Route: 048
  4. LITHIUM [Concomitant]
     Indication: DEPRESSION
     Dosage: 300 MG, 1X/DAY
     Route: 048

REACTIONS (3)
  - DRUG INEFFECTIVE [None]
  - LUNG DISORDER [None]
  - TOBACCO USER [None]
